FAERS Safety Report 16357026 (Version 1)
Quarter: 2019Q2

REPORT INFORMATION
  Report Type: Spontaneous
  Country: US (occurrence: US)
  Receive Date: 20190527
  Receipt Date: 20190527
  Transmission Date: 20190711
  Serious: Yes (Other)
  Sender: FDA-Public Use
  Company Number: US-SCIEGEN PHARMACEUTICALS INC-2019SCILIT00180

PATIENT
  Age: 76 Year
  Sex: Male

DRUGS (3)
  1. QUETIAPINE. [Suspect]
     Active Substance: QUETIAPINE
  2. LEVODOPA /CARBIDOPA [Concomitant]
  3. RISPERIDONE. [Suspect]
     Active Substance: RISPERIDONE

REACTIONS (3)
  - Cogwheel rigidity [Recovering/Resolving]
  - Delirium [Recovering/Resolving]
  - Product use in unapproved indication [Unknown]
